FAERS Safety Report 14146515 (Version 1)
Quarter: 2017Q4

REPORT INFORMATION
  Report Type: Report from Study
  Country: CA (occurrence: CA)
  Receive Date: 20171031
  Receipt Date: 20171031
  Transmission Date: 20180321
  Serious: Yes (Other)
  Sender: FDA-Public Use
  Company Number: CA-JNJFOC-20171000850

PATIENT
  Age: 37 Year
  Sex: Male
  Weight: 95.25 kg

DRUGS (1)
  1. STELARA [Suspect]
     Active Substance: USTEKINUMAB
     Indication: CROHN^S DISEASE
     Route: 058
     Dates: start: 20170511, end: 20170831

REACTIONS (8)
  - Tinnitus [Unknown]
  - Headache [Unknown]
  - Influenza [Unknown]
  - Obsessive-compulsive disorder [Unknown]
  - Anxiety [Not Recovered/Not Resolved]
  - General physical health deterioration [Unknown]
  - Abscess [Not Recovered/Not Resolved]
  - Frequent bowel movements [Unknown]

NARRATIVE: CASE EVENT DATE: 2017
